FAERS Safety Report 16384492 (Version 1)
Quarter: 2019Q2

REPORT INFORMATION
  Report Type: Spontaneous
  Country: US (occurrence: US)
  Receive Date: 20190603
  Receipt Date: 20190603
  Transmission Date: 20190711
  Serious: No
  Sender: FDA-Public Use
  Company Number: US-ELI_LILLY_AND_COMPANY-US201905008369

PATIENT
  Sex: Female

DRUGS (1)
  1. EMGALITY [Suspect]
     Active Substance: GALCANEZUMAB-GNLM
     Indication: MIGRAINE
     Dosage: 1 DOSAGE FORM, UNKNOWN
     Route: 065
     Dates: start: 201904

REACTIONS (5)
  - Weight decreased [Unknown]
  - Depression [Recovering/Resolving]
  - Decreased appetite [Unknown]
  - Depressed mood [Recovering/Resolving]
  - Depersonalisation/derealisation disorder [Recovering/Resolving]
